FAERS Safety Report 4357862-6 (Version None)
Quarter: 2004Q2

REPORT INFORMATION
  Report Type: 
  Country: None (occurrence: None)
  Receive Date: 20040513
  Receipt Date: 20040513
  Transmission Date: 20050107
  Serious: Yes (Life-Threatening)
  Sender: FDA-Public Use
  Company Number: None

PATIENT
  Age: 66 Year
  Sex: Male
  Weight: 64 kg

DRUGS (1)
  1. METOPROLOL 12.5 MG [Suspect]
     Indication: CARDIAC FAILURE CONGESTIVE
     Dosage: 12.5 MG BID ORAL
     Route: 048
     Dates: start: 20040108, end: 20040115

REACTIONS (1)
  - ATRIOVENTRICULAR BLOCK FIRST DEGREE [None]
